FAERS Safety Report 11273238 (Version 1)
Quarter: 2015Q2

REPORT INFORMATION
  Report Type: Spontaneous
  Country: US (occurrence: None)
  Receive Date: 20150625
  Receipt Date: 20150625
  Transmission Date: 20150821
  Serious: No
  Sender: FDA-Public Use
  Company Number: A-US2015-113898

PATIENT
  Age: 61 Year
  Sex: Female

DRUGS (12)
  1. FUROSEMIDE (FUROSEMIDE SODIUM) [Concomitant]
  2. OPSUMIT [Suspect]
     Active Substance: MACITENTAN
     Indication: PULMONARY ARTERIAL HYPERTENSION
     Route: 048
     Dates: start: 20141016
  3. REMODULIN [Concomitant]
     Active Substance: TREPROSTINIL
  4. MULTIVITAMIN (VITAMINS NOS) [Concomitant]
     Active Substance: VITAMINS
  5. WARFARIN (WARFARIN) [Concomitant]
     Active Substance: WARFARIN
  6. POTASSIUM (POTASSIUM) [Concomitant]
     Active Substance: POTASSIUM
  7. DULOXETINE (DULOXETINE) [Concomitant]
     Active Substance: DULOXETINE
  8. ATORVASTATIN (ATORVASTATIN CALCIUM) [Concomitant]
  9. DILTIAZEM (DILTIAZEM HYDROCHLORIDE) (DILTIAZEM HYDROCHLORIDE) [Concomitant]
     Active Substance: DILTIAZEM
  10. HYDROCODONE BITARTRATE AND ACETAMINOPHEN [Concomitant]
     Active Substance: ACETAMINOPHEN\HYDROCODONE BITARTRATE
  11. LYRICA [Concomitant]
     Active Substance: PREGABALIN
  12. MAGNESIUM (MAGNESIUM SULFATE) [Concomitant]

REACTIONS (1)
  - Depression [None]

NARRATIVE: CASE EVENT DATE: 201410
